FAERS Safety Report 13614851 (Version 1)
Quarter: 2017Q2

REPORT INFORMATION
  Report Type: Spontaneous
  Country: JP (occurrence: JP)
  Receive Date: 20170606
  Receipt Date: 20170606
  Transmission Date: 20170830
  Serious: Yes (Death, Hospitalization, Other)
  Sender: FDA-Public Use
  Company Number: JP-GLAXOSMITHKLINE-JP2017JPN083747

PATIENT
  Age: 22 Year
  Sex: Male

DRUGS (3)
  1. FLOLAN [Suspect]
     Active Substance: EPOPROSTENOL SODIUM
     Indication: PULMONARY ARTERIAL HYPERTENSION
     Dosage: 51 UNK, UNK
     Route: 042
  2. BOSENTAN HYDRATE [Concomitant]
     Dosage: 125 MG, UNK
  3. TADALAFIL [Concomitant]
     Active Substance: TADALAFIL
     Dosage: 60 MG, UNK

REACTIONS (1)
  - Cardiac failure [Fatal]
